FAERS Safety Report 4731179-X (Version None)
Quarter: 2005Q3

REPORT INFORMATION
  Report Type: 
  Country: None (occurrence: None)
  Receive Date: 20050729
  Receipt Date: 20050729
  Transmission Date: 20060218
  Serious: Yes (Life-Threatening, Disabling)
  Sender: FDA-Public Use
  Company Number: None

PATIENT
  Age: 44 Year
  Sex: Female
  Weight: 54.4316 kg

DRUGS (3)
  1. PHENERGAN [Suspect]
     Indication: NAUSEA
     Dosage: 1     1    INTRAVENOU
     Route: 042
     Dates: start: 19990108, end: 19990108
  2. PROZAC [Concomitant]
  3. LITHIUM [Concomitant]

REACTIONS (4)
  - BRAIN DAMAGE [None]
  - DOCUMENTED HYPERSENSITIVITY TO ADMINISTERED DRUG [None]
  - ENCEPHALOPATHY [None]
  - NEUROLEPTIC MALIGNANT SYNDROME [None]
